FAERS Safety Report 14599514 (Version 1)
Quarter: 2018Q1

REPORT INFORMATION
  Report Type: Spontaneous
  Country: US (occurrence: US)
  Receive Date: 20180305
  Receipt Date: 20180305
  Transmission Date: 20180509
  Serious: Yes (Hospitalization)
  Sender: FDA-Public Use
  Company Number: US-ABBVIE-18P-163-2273346-00

PATIENT
  Age: 54 Year
  Sex: Male

DRUGS (1)
  1. MAVYRET [Suspect]
     Active Substance: GLECAPREVIR\PIBRENTASVIR
     Indication: HEPATITIS C
     Dosage: 100 MG/40 MG, THREE TABLETS
     Route: 048
     Dates: start: 20180220, end: 20180225

REACTIONS (1)
  - Malaise [Not Recovered/Not Resolved]

NARRATIVE: CASE EVENT DATE: 20180225
